FAERS Safety Report 9228681 (Version 1)
Quarter: 2013Q2

REPORT INFORMATION
  Report Type: Spontaneous
  Country: JP (occurrence: JP)
  Receive Date: 20130412
  Receipt Date: 20130412
  Transmission Date: 20140414
  Serious: Yes (Other)
  Sender: FDA-Public Use
  Company Number: JP-PFIZER INC-2013112356

PATIENT
  Age: 2 Year
  Sex: Male

DRUGS (1)
  1. ADRIACIN [Suspect]
     Indication: NEPHROBLASTOMA

REACTIONS (2)
  - Pneumonia respiratory syncytial viral [Recovered/Resolved]
  - Respiratory failure [Recovered/Resolved]
